FAERS Safety Report 8784529 (Version 1)
Quarter: 2012Q4

REPORT INFORMATION
  Report Type: Spontaneous
  Country: US (occurrence: None)
  Receive Date: 20120907
  Receipt Date: 20120907
  Transmission Date: 20130627
  Serious: Yes (Other)
  Sender: FDA-Public Use
  Company Number: None

PATIENT
  Age: 50 Year
  Sex: Female
  Weight: 97.07 kg

DRUGS (1)
  1. CYMBALTA [Suspect]
     Indication: FIBROMYALGIA
     Dosage: 1 day
     Route: 048
     Dates: start: 20120727, end: 20120905

REACTIONS (5)
  - Thirst [None]
  - Hyperhidrosis [None]
  - Somnolence [None]
  - Drug ineffective [None]
  - Drug withdrawal syndrome [None]
